FAERS Safety Report 12911104 (Version 1)
Quarter: 2016Q4

REPORT INFORMATION
  Report Type: Spontaneous
  Country: US (occurrence: US)
  Receive Date: 20161104
  Receipt Date: 20161104
  Transmission Date: 20170207
  Serious: No
  Sender: FDA-Public Use
  Company Number: US-PFIZER INC-2016512336

PATIENT
  Sex: Female

DRUGS (1)
  1. LYRICA [Suspect]
     Active Substance: PREGABALIN

REACTIONS (6)
  - Pain [Unknown]
  - Bedridden [Unknown]
  - Arthralgia [Unknown]
  - Eye irritation [Unknown]
  - Headache [Unknown]
  - Condition aggravated [Unknown]
